FAERS Safety Report 8465545-6 (Version None)
Quarter: 2012Q2

REPORT INFORMATION
  Report Type: 
  Country: None (occurrence: None)
  Receive Date: 20120626
  Receipt Date: 20120620
  Transmission Date: 20120825
  Serious: No
  Sender: FDA-Public Use
  Company Number: US-PFIZER INC-2012149888

PATIENT
  Sex: Male
  Weight: 19.048 kg

DRUGS (2)
  1. CHILDREN'S ADVIL [Suspect]
     Indication: PYREXIA
     Dosage: ONE AND HALF TEA SPOON, UNK
  2. ACETAMINOPHEN [Concomitant]
     Dosage: UNK

REACTIONS (3)
  - RHINORRHOEA [None]
  - SNEEZING [None]
  - COUGH [None]
